FAERS Safety Report 25709984 (Version 1)
Quarter: 2025Q3

REPORT INFORMATION
  Report Type: Spontaneous
  Country: US (occurrence: US)
  Receive Date: 20250821
  Receipt Date: 20250821
  Transmission Date: 20251020
  Serious: Yes (Other)
  Sender: MERCK SHARP & DOHME LLC
  Company Number: US-009507513-2320748

PATIENT
  Age: 80 Year
  Sex: Female
  Weight: 77.111 kg

DRUGS (7)
  1. WINREVAIR [Suspect]
     Active Substance: SOTATERCEPT-CSRK
  2. WINREVAIR [Suspect]
     Active Substance: SOTATERCEPT-CSRK
  3. WINREVAIR [Suspect]
     Active Substance: SOTATERCEPT-CSRK
  4. WINREVAIR [Suspect]
     Active Substance: SOTATERCEPT-CSRK
  5. UPTRAVI [Suspect]
     Active Substance: SELEXIPAG
     Indication: Pulmonary arterial hypertension
     Dosage: 600 MICROGRAMS, 2 IN 1 DAY
     Route: 048
  6. ADEMPAS [Concomitant]
     Active Substance: RIOCIGUAT
  7. OPSUMIT [Concomitant]
     Active Substance: MACITENTAN

REACTIONS (1)
  - Oral surgery [Unknown]

NARRATIVE: CASE EVENT DATE: 20250723
